FAERS Safety Report 19568571 (Version 2)
Quarter: 2021Q3

REPORT INFORMATION
  Report Type: Spontaneous
  Country: RU (occurrence: RU)
  Receive Date: 20210715
  Receipt Date: 20210722
  Transmission Date: 20211014
  Serious: No
  Sender: FDA-Public Use
  Company Number: RU-SA-2021SA220043

PATIENT
  Age: 29 Year
  Sex: Female
  Weight: 59 kg

DRUGS (2)
  1. CLEXANE [Suspect]
     Active Substance: ENOXAPARIN SODIUM
     Dosage: 0.4
     Route: 058
     Dates: start: 20210703
  2. CLEXANE [Suspect]
     Active Substance: ENOXAPARIN SODIUM
     Indication: PREGNANCY
     Dosage: 0.4
     Route: 058
     Dates: start: 20210702, end: 20210702

REACTIONS (4)
  - Device delivery system issue [Unknown]
  - Product use in unapproved indication [Unknown]
  - Product packaging issue [Unknown]
  - Maternal exposure during pregnancy [Unknown]
